FAERS Safety Report 9626259 (Version 1)
Quarter: 2013Q4

REPORT INFORMATION
  Report Type: Spontaneous
  Country: US (occurrence: None)
  Receive Date: 20131015
  Receipt Date: 20131015
  Transmission Date: 20140711
  Serious: Yes (Life-Threatening, Hospitalization)
  Sender: FDA-Public Use
  Company Number: None

PATIENT
  Age: 41 Year
  Sex: Female
  Weight: 72.12 kg

DRUGS (1)
  1. MELOXICAM [Suspect]
     Indication: ARTHRALGIA
     Dosage: 1 PILL
     Route: 048
     Dates: start: 20130920, end: 20131009

REACTIONS (4)
  - Inflammation [None]
  - Chest pain [None]
  - Hypoaesthesia [None]
  - Pain in extremity [None]
